FAERS Safety Report 7589726-9 (Version None)
Quarter: 2011Q3

REPORT INFORMATION
  Report Type: 
  Country: None (occurrence: None)
  Receive Date: 20110705
  Receipt Date: 20110622
  Transmission Date: 20111222
  Serious: Yes (Other)
  Sender: FDA-Public Use
  Company Number: US-SANOFI-AVENTIS-2011SA041181

PATIENT
  Sex: Female

DRUGS (4)
  1. COUMADIN [Suspect]
     Route: 048
  2. LOVENOX [Suspect]
     Route: 058
     Dates: start: 20000101
  3. PLAVIX [Suspect]
     Route: 048
  4. ASPIRIN [Suspect]
     Route: 048

REACTIONS (1)
  - DEEP VEIN THROMBOSIS [None]
